FAERS Safety Report 8909219 (Version 1)
Quarter: 2012Q4

REPORT INFORMATION
  Report Type: Spontaneous
  Country: US (occurrence: None)
  Receive Date: 20121113
  Receipt Date: 20121113
  Transmission Date: 20130627
  Serious: Yes (Hospitalization)
  Sender: FDA-Public Use
  Company Number: None

PATIENT
  Sex: Male
  Weight: 71 kg

DRUGS (2)
  1. SOLIRIS [Suspect]
     Indication: PROPHYLAXIS AGAINST TRANSPLANT REJECTION
     Dosage: 09/27, 09/28, 09/30, 10/01, 10/02, 10/03, 10/04/2012; 1200mg, once, iV
     Route: 042
  2. SOLIRIS [Suspect]
     Indication: PROPHYLAXIS AGAINST TRANSPLANT REJECTION
     Dosage: 900 mg / 600 mg; 900 (2x^s) 600 (5x^s); IV

REACTIONS (4)
  - Atrial fibrillation [None]
  - Anaemia [None]
  - Renal mass [None]
  - Urinary retention [None]
